FAERS Safety Report 10112361 (Version 1)
Quarter: 2014Q2

REPORT INFORMATION
  Report Type: Spontaneous
  Country: CA (occurrence: CA)
  Receive Date: 20140425
  Receipt Date: 20140425
  Transmission Date: 20141212
  Serious: Yes (Hospitalization)
  Sender: FDA-Public Use
  Company Number: CA-ABBVIE-14P-028-1226934-00

PATIENT
  Age: 45 Year
  Sex: Male

DRUGS (6)
  1. HUMIRA [Suspect]
     Indication: PRODUCT USED FOR UNKNOWN INDICATION
     Route: 058
  2. CIPROFLOXACIN [Interacting]
     Indication: PRODUCT USED FOR UNKNOWN INDICATION
     Route: 048
  3. PREDNISONE [Interacting]
     Indication: PRODUCT USED FOR UNKNOWN INDICATION
  4. REMICADE [Interacting]
     Indication: PRODUCT USED FOR UNKNOWN INDICATION
     Route: 042
  5. SPORANOX [Interacting]
     Indication: PRODUCT USED FOR UNKNOWN INDICATION
     Route: 048
  6. METOPROLOL [Concomitant]
     Indication: PRODUCT USED FOR UNKNOWN INDICATION

REACTIONS (3)
  - Renal failure [Unknown]
  - Drug interaction [Unknown]
  - Cholelithiasis [Unknown]
